FAERS Safety Report 13070761 (Version 2)
Quarter: 2017Q1

REPORT INFORMATION
  Report Type: Spontaneous
  Country: NO (occurrence: NO)
  Receive Date: 20161229
  Receipt Date: 20170228
  Transmission Date: 20170428
  Serious: Yes (Other)
  Sender: FDA-Public Use
  Company Number: NO-ACCORD-046835

PATIENT
  Age: 6 Decade
  Sex: Female

DRUGS (4)
  1. VINORELBINE [Suspect]
     Active Substance: VINORELBINE\VINORELBINE TARTRATE
     Indication: ADRENOCORTICAL CARCINOMA
     Dosage: DAY 1, 8 AND 22
     Route: 065
  2. CARBOPLATIN. [Suspect]
     Active Substance: CARBOPLATIN
     Indication: ADRENOCORTICAL CARCINOMA
     Dosage: 4 COURSES, AUC5, DAY 1 AND 22
     Route: 065
  3. PEMETREXED [Suspect]
     Active Substance: PEMETREXED
     Indication: ADRENOCORTICAL CARCINOMA
     Dosage: DAY 1 AND 22
     Route: 065
  4. METHOTREXATE. [Suspect]
     Active Substance: METHOTREXATE
     Indication: RHEUMATOID ARTHRITIS
     Route: 065
     Dates: start: 201211

REACTIONS (5)
  - Therapeutic response unexpected [Unknown]
  - Therapeutic response decreased [Unknown]
  - Wrong drug administered [Unknown]
  - Fatigue [Unknown]
  - Off label use [Unknown]

NARRATIVE: CASE EVENT DATE: 201110
